FAERS Safety Report 10414967 (Version 3)
Quarter: 2014Q4

REPORT INFORMATION
  Report Type: Spontaneous
  Country: GB (occurrence: GB)
  Receive Date: 20140828
  Receipt Date: 20141124
  Transmission Date: 20150528
  Serious: Yes (Death)
  Sender: FDA-Public Use
  Company Number: GB-JNJFOC-20140818258

PATIENT
  Age: 4 Decade
  Sex: Male

DRUGS (1)
  1. XEPLION [Suspect]
     Active Substance: PALIPERIDONE PALMITATE
     Indication: PRODUCT USED FOR UNKNOWN INDICATION
     Route: 030
     Dates: end: 20140228

REACTIONS (3)
  - Overdose [Fatal]
  - Death [Fatal]
  - Drug abuser [Unknown]
